FAERS Safety Report 25106837 (Version 3)
Quarter: 2025Q2

REPORT INFORMATION
  Report Type: Spontaneous
  Country: ES (occurrence: ES)
  Receive Date: 20250321
  Receipt Date: 20250404
  Transmission Date: 20250717
  Serious: Yes (Other)
  Sender: JOHNSON AND JOHNSON
  Company Number: ES-JNJFOC-20250346440

PATIENT
  Age: 50 Year
  Sex: Male

DRUGS (1)
  1. REMICADE [Suspect]
     Active Substance: INFLIXIMAB
     Indication: Crohn^s disease
     Route: 041

REACTIONS (11)
  - Osteonecrosis [Not Recovered/Not Resolved]
  - Drug ineffective [Unknown]
  - Adverse drug reaction [Unknown]
  - Tooth fracture [Unknown]
  - Dry eye [Unknown]
  - Sensitive skin [Unknown]
  - Pruritus [Unknown]
  - Dry mouth [Unknown]
  - Heart rate increased [Unknown]
  - Libido decreased [Unknown]
  - Osteoarthritis [Not Recovered/Not Resolved]
